FAERS Safety Report 16160780 (Version 3)
Quarter: 2019Q3

REPORT INFORMATION
  Report Type: Spontaneous
  Country: US (occurrence: US)
  Receive Date: 20190405
  Receipt Date: 20190715
  Transmission Date: 20191004
  Serious: Yes (Other)
  Sender: FDA-Public Use
  Company Number: US-ROCHE-2292440

PATIENT
  Age: 51 Year
  Sex: Female
  Weight: 103.06 kg

DRUGS (12)
  1. OCREVUS [Suspect]
     Active Substance: OCRELIZUMAB
     Indication: MULTIPLE SCLEROSIS
     Route: 065
     Dates: start: 20190304, end: 20190314
  2. FIORICET [Concomitant]
     Active Substance: ACETAMINOPHEN\BUTALBITAL\CAFFEINE
     Dosage: 325 MG-50 MG-40MG TABLET. I TAB ORALLY ONCE A DAY PRN
     Route: 001
  3. BACLOFEN. [Concomitant]
     Active Substance: BACLOFEN
     Dosage: ORALLY AS NEEDED EVERY 8 HR
     Route: 065
     Dates: start: 20190315
  4. FLUOXETINE [Concomitant]
     Active Substance: FLUOXETINE HYDROCHLORIDE
     Dosage: 1 TAB ONCE A DAY
     Route: 065
     Dates: start: 20190409
  5. LABETALOL [Concomitant]
     Active Substance: LABETALOL\LABETALOL HYDROCHLORIDE
     Route: 065
  6. DEXTROAMPHETAMINE SULFATE. [Concomitant]
     Active Substance: DEXTROAMPHETAMINE SULFATE
     Dosage: 2 CAP ORALLY ONCE A DAY
     Route: 065
  7. DALFAMPRIDINE. [Concomitant]
     Active Substance: DALFAMPRIDINE
     Dosage: EVERY 12 HR
     Route: 065
  8. DYSPORT [Concomitant]
     Active Substance: ABOBOTULINUMTOXINA
     Dosage: 500 UNIT
     Route: 065
  9. LISINOPRIL. [Concomitant]
     Active Substance: LISINOPRIL
     Route: 065
  10. METHYLPREDNISOLONE. [Concomitant]
     Active Substance: METHYLPREDNISOLONE
     Route: 065
  11. ROPINIROLE. [Concomitant]
     Active Substance: ROPINIROLE
     Dosage: 1-1/2-2 TABLET ORALLY 4 A DAY PRN
     Route: 065
  12. VITAMIN D3 [Concomitant]
     Active Substance: CHOLECALCIFEROL
     Route: 065
     Dates: start: 20190322

REACTIONS (1)
  - Upper respiratory tract infection [Recovered/Resolved]

NARRATIVE: CASE EVENT DATE: 20190318
